FAERS Safety Report 9311567 (Version 1)
Quarter: 2013Q2

REPORT INFORMATION
  Report Type: Spontaneous
  Country: US (occurrence: US)
  Receive Date: 20130528
  Receipt Date: 20130528
  Transmission Date: 20140414
  Serious: Yes (Disabling, Other)
  Sender: FDA-Public Use
  Company Number: US-PFIZER INC-2013160598

PATIENT
  Age: 60 Year
  Sex: Female
  Weight: 49.89 kg

DRUGS (16)
  1. LYRICA [Suspect]
     Indication: FIBROMYALGIA
     Dosage: 50 MG, 1X/DAY
  2. LYRICA [Suspect]
     Dosage: 75 MG, 1X/DAY
  3. LYRICA [Suspect]
     Dosage: UNK
  4. VICODIN [Suspect]
     Indication: PAIN
     Dosage: UNK
  5. HYDROCODONE W/ACETAMINOPHEN [Suspect]
     Indication: PAIN
     Dosage: 10/325 MG, UNK
  6. ULTRAM [Concomitant]
     Dosage: 50 MG, UNK
  7. IBUPROFEN [Concomitant]
     Indication: ARTHRITIS
     Dosage: UNK (UP TO 600 MG), AS NEEDED
  8. ZINC [Concomitant]
     Dosage: UNK
  9. ASPIRIN [Concomitant]
     Dosage: 81 MG, 1X/DAY
  10. VITAMIN B6 [Concomitant]
     Dosage: UNK
  11. VITAMIN B12 [Concomitant]
     Dosage: UNK
  12. FOLIC ACID [Concomitant]
     Dosage: UNK
  13. VITAMIN C [Concomitant]
     Dosage: UNK
  14. VITAMIN D3 [Concomitant]
     Dosage: UNK
  15. MAGNESIUM [Concomitant]
     Dosage: UNK
  16. CALCIUM [Concomitant]
     Dosage: UNK

REACTIONS (10)
  - Road traffic accident [Unknown]
  - Rib fracture [Unknown]
  - Muscle injury [Recovering/Resolving]
  - Neck injury [Recovering/Resolving]
  - Head injury [Recovering/Resolving]
  - Anxiety [Unknown]
  - Depression [Unknown]
  - Pain [Unknown]
  - Arthropathy [Recovering/Resolving]
  - Constipation [Unknown]
